APPROVED DRUG PRODUCT: TORSEMIDE
Active Ingredient: TORSEMIDE
Strength: 20MG/2ML (10MG/ML)
Dosage Form/Route: SOLUTION;INTRAVENOUS
Application: A078007 | Product #001
Applicant: HIKMA PHARMACEUTICALS USA INC
Approved: Jun 11, 2008 | RLD: No | RS: No | Type: DISCN